FAERS Safety Report 22116981 (Version 2)
Quarter: 2023Q2

REPORT INFORMATION
  Report Type: Spontaneous
  Country: AU (occurrence: AU)
  Receive Date: 20230320
  Receipt Date: 20230411
  Transmission Date: 20230721
  Serious: Yes (Other)
  Sender: FDA-Public Use
  Company Number: AU-NAPPMUNDI-GBR-2023-0105712

PATIENT
  Age: 67 Year
  Sex: Male

DRUGS (1)
  1. NORSPAN [Suspect]
     Active Substance: BUPRENORPHINE
     Indication: Pain
     Dosage: 15 MCG, WEEKLY PATIENT ONLY USES IT ^ROUGHLY FOR 4 DAYS^
     Route: 062

REACTIONS (4)
  - Dermatitis [Not Recovered/Not Resolved]
  - Pruritus [Not Recovered/Not Resolved]
  - Erythema [Not Recovered/Not Resolved]
  - Treatment noncompliance [Unknown]
